FAERS Safety Report 5570330-9 (Version None)
Quarter: 2007Q4

REPORT INFORMATION
  Report Type: 
  Country: None (occurrence: None)
  Receive Date: 20071221
  Receipt Date: 20071214
  Transmission Date: 20080405
  Serious: Yes (Life-Threatening, Hospitalization)
  Sender: FDA-Public Use
  Company Number: PHBS2007BR21015

PATIENT
  Age: 41 Year
  Sex: Male

DRUGS (1)
  1. TEGRETOL [Suspect]
     Dosage: 24000 MG, ONCE/SINGLE
     Route: 048
     Dates: start: 20071213, end: 20071213

REACTIONS (5)
  - AGITATION [None]
  - COMA [None]
  - INTUBATION [None]
  - SOMNOLENCE [None]
  - SUICIDE ATTEMPT [None]
